FAERS Safety Report 12206949 (Version 1)
Quarter: 2016Q1

REPORT INFORMATION
  Report Type: Spontaneous
  Country: NL (occurrence: NL)
  Receive Date: 20160324
  Receipt Date: 20160324
  Transmission Date: 20160526
  Serious: Yes (Other)
  Sender: FDA-Public Use
  Company Number: NL-TEVA-644010ACC

PATIENT
  Age: 83 Year
  Sex: Female

DRUGS (7)
  1. ACENOCOUMAROL TABLET 1MG [Concomitant]
     Active Substance: ACENOCOUMAROL
     Route: 048
  2. AMOXICILLIN. [Suspect]
     Active Substance: AMOXICILLIN
     Indication: PNEUMONIA
     Dosage: 4000 MILLIGRAM DAILY; 4000 MG; ADDITIONAL INFO: 4 TIMES DAILY 1000 MG
     Route: 042
     Dates: start: 20160229
  3. AMLODIPINE BESILAAT [Concomitant]
     Dosage: 5 MILLIGRAM DAILY; 5MG; ADDITIONAL INFO: ONCE DAILY 500 MG
     Route: 048
  4. ALLOPURINOL TABLET 200MG [Concomitant]
     Dosage: 200 MILLIGRAM DAILY; 200 MG; ADDITIONAL INFO: ONCE DAILY 200 MG
     Route: 048
  5. VITAMINE B COMPLEX TABLET (DIVERSE FABRIKATEN) [Concomitant]
     Dosage: 1 DOSAGE FORMS DAILY; 1 DOSAGE FORM; ONCE DAILY ONE
     Route: 048
  6. SOTALOL TABLET  40MG [Concomitant]
     Active Substance: SOTALOL
     Dosage: 80 MILLIGRAM DAILY; 80 MG; ADDITIONAL INFO: TWICE DAILY 40 MG
     Route: 048
  7. PARACETAMOL [Concomitant]
     Active Substance: ACETAMINOPHEN
     Dosage: ADDITIONAL INFO: 500 MG AS REQUIRED
     Route: 065

REACTIONS (2)
  - Renal impairment [Recovering/Resolving]
  - Dehydration [Unknown]

NARRATIVE: CASE EVENT DATE: 20160302
